FAERS Safety Report 10310764 (Version 1)
Quarter: 2014Q3

REPORT INFORMATION
  Report Type: Spontaneous
  Country: IN (occurrence: None)
  Receive Date: 20140714
  Receipt Date: 20140714
  Transmission Date: 20150326
  Serious: Yes (Hospitalization, Other)
  Sender: FDA-Public Use
  Company Number: AUR-APL-2014-07296

PATIENT
  Age: 17 Year
  Sex: Female

DRUGS (1)
  1. DIVALPROEX (VALPROATE) UNKNOWN, UNKNOWN [Suspect]
     Active Substance: DIVALPROEX SODIUM
     Indication: PRODUCT USED FOR UNKNOWN INDICATION

REACTIONS (8)
  - Pyrexia [None]
  - Rash [None]
  - Drug reaction with eosinophilia and systemic symptoms [None]
  - Multi-organ disorder [None]
  - Hepatosplenomegaly [None]
  - Lymphadenopathy [None]
  - Oedema [None]
  - Hepatic function abnormal [None]
